FAERS Safety Report 9735442 (Version 2)
Quarter: 2015Q3

REPORT INFORMATION
  Report Type: Spontaneous
  Country: US (occurrence: US)
  Receive Date: 20131206
  Receipt Date: 20150804
  Transmission Date: 20151125
  Serious: No
  Sender: FDA-Public Use
  Company Number: US-GILEAD-2009-0022851

PATIENT
  Age: 54 Year
  Sex: Female
  Weight: 103.42 kg

DRUGS (14)
  1. FLECAINIDE [Concomitant]
     Active Substance: FLECAINIDE
  2. PREMARIN [Concomitant]
     Active Substance: ESTROGENS, CONJUGATED
  3. LETAIRIS [Suspect]
     Active Substance: AMBRISENTAN
     Indication: PULMONARY ARTERIAL HYPERTENSION
     Route: 048
     Dates: start: 20090611
  4. OXYGEN. [Concomitant]
     Active Substance: OXYGEN
  5. RESTASIS [Concomitant]
     Active Substance: CYCLOSPORINE
  6. DEXAMETHASONE 0.5MG/5ML [Concomitant]
  7. TRIAMTERENE-HCTZ [Concomitant]
     Active Substance: HYDROCHLOROTHIAZIDE\TRIAMTERENE
  8. CYCLOSPORINE. [Concomitant]
     Active Substance: CYCLOSPORINE
  9. FLUOROMETHOLONE 0.1% [Concomitant]
  10. XOPENEX [Concomitant]
     Active Substance: LEVALBUTEROL HYDROCHLORIDE
  11. MULTIVITAMIN [Concomitant]
     Active Substance: VITAMINS
  12. SINGULAIR [Concomitant]
     Active Substance: MONTELUKAST SODIUM
  13. SYNTHROID [Concomitant]
     Active Substance: LEVOTHYROXINE SODIUM
  14. ZADITOR 0.025% [Concomitant]

REACTIONS (2)
  - Palpitations [Unknown]
  - Tachycardia [Unknown]
